FAERS Safety Report 11574505 (Version 1)
Quarter: 2015Q3

REPORT INFORMATION
  Report Type: Spontaneous
  Country: US (occurrence: None)
  Receive Date: 20150929
  Receipt Date: 20150929
  Transmission Date: 20151125
  Serious: No
  Sender: FDA-Public Use
  Company Number: None

PATIENT
  Age: 51 Year
  Sex: Female
  Weight: 68.95 kg

DRUGS (20)
  1. BACLOFEN. [Concomitant]
     Active Substance: BACLOFEN
  2. MAGNESIUM [Concomitant]
     Active Substance: MAGNESIUM
  3. ESTRADOL [Concomitant]
  4. STOOL SOFTENER [Concomitant]
     Active Substance: DOCUSATE CALCIUM
  5. FLAXSEED [Concomitant]
     Active Substance: FLAX SEED
  6. RESTORIL [Concomitant]
     Active Substance: TEMAZEPAM
  7. XANAX [Concomitant]
     Active Substance: ALPRAZOLAM
  8. MEDROXYPROGESTERONE [Concomitant]
     Active Substance: MEDROXYPROGESTERONE
  9. OMEPRAZOLE. [Concomitant]
     Active Substance: OMEPRAZOLE
  10. VOLTAREN [Concomitant]
     Active Substance: DICLOFENAC SODIUM
  11. CALCIUM [Concomitant]
     Active Substance: CALCIUM
  12. FENTANYL. [Suspect]
     Active Substance: FENTANYL
     Indication: SURGERY
     Dates: start: 20140903
  13. ZOCOR [Concomitant]
     Active Substance: SIMVASTATIN
  14. TRIAMTERENE. [Concomitant]
     Active Substance: TRIAMTERENE
  15. VITAMIN B COMPLEX [Concomitant]
     Active Substance: CYANOCOBALAMIN\DEXPANTHENOL\NIACINAMIDE\PYRIDOXINE HYDROCHLORIDE\RIBOFLAVIN 5^-PHOSPHATE SODIUM\THIAMINE HYDROCHLORIDE\VITAMIN B COMPLEX
  16. OMEGA 3-6-9 [Concomitant]
     Active Substance: FISH OIL
  17. LYRICIA [Concomitant]
  18. D3 [Concomitant]
     Active Substance: 25-HYDROXYCHOLECALCIFEROL, 5-TRANS-
  19. FENTANYL. [Suspect]
     Active Substance: FENTANYL
     Indication: MUSCLE SPASMS
     Dates: start: 20140903
  20. MOBIC [Concomitant]
     Active Substance: MELOXICAM

REACTIONS (7)
  - Tooth disorder [None]
  - Pain [None]
  - Back pain [None]
  - Gingival recession [None]
  - Toothache [None]
  - Tremor [None]
  - Muscle spasms [None]

NARRATIVE: CASE EVENT DATE: 20140903
